FAERS Safety Report 17502795 (Version 1)
Quarter: 2020Q1

REPORT INFORMATION
  Report Type: Spontaneous
  Country: US (occurrence: US)
  Receive Date: 20200305
  Receipt Date: 20200305
  Transmission Date: 20200409
  Serious: Yes (Hospitalization)
  Sender: FDA-Public Use
  Company Number: None

PATIENT
  Age: 30 Year
  Sex: Female
  Weight: 74.25 kg

DRUGS (3)
  1. WELLBUTRIN [Concomitant]
     Active Substance: BUPROPION HYDROCHLORIDE
  2. EMGALITY [Suspect]
     Active Substance: GALCANEZUMAB-GNLM
     Indication: MIGRAINE
     Dates: end: 20200117
  3. SYNTHROID [Concomitant]
     Active Substance: LEVOTHYROXINE SODIUM

REACTIONS (13)
  - Constipation [None]
  - Cellulitis [None]
  - Feeling abnormal [None]
  - Fall [None]
  - Loss of personal independence in daily activities [None]
  - Dizziness [None]
  - Staphylococcal infection [None]
  - Eating disorder [None]
  - Memory impairment [None]
  - Pain [None]
  - Myalgia [None]
  - Abdominal pain upper [None]
  - Muscle spasms [None]

NARRATIVE: CASE EVENT DATE: 20200124
